FAERS Safety Report 9128014 (Version 1)
Quarter: 2013Q1

REPORT INFORMATION
  Report Type: Spontaneous
  Country: US (occurrence: US)
  Receive Date: 20130122
  Receipt Date: 20130122
  Transmission Date: 20140127
  Serious: No
  Sender: FDA-Public Use
  Company Number: US-BAYER-2013-008035

PATIENT
  Age: 64 Year
  Sex: Female
  Weight: 84.81 kg

DRUGS (3)
  1. ALEVE GELCAP [Suspect]
     Dosage: 1 DF, PRN
     Route: 048
     Dates: start: 2010, end: 20130107
  2. NORVASC [Concomitant]
  3. VITAMIN C [Concomitant]

REACTIONS (1)
  - Drug ineffective [None]
